FAERS Safety Report 11292004 (Version 1)
Quarter: 2015Q3

REPORT INFORMATION
  Report Type: Spontaneous
  Country: FR (occurrence: FR)
  Receive Date: 20150722
  Receipt Date: 20150722
  Transmission Date: 20151125
  Serious: Yes (Death, Life-Threatening)
  Sender: FDA-Public Use
  Company Number: PHHY2015FR084009

PATIENT
  Age: 67 Year
  Sex: Male
  Weight: 74 kg

DRUGS (5)
  1. AMOXICILLIN-CLAVULANIC ACID [Suspect]
     Active Substance: AMOXICILLIN\CLAVULANIC ACID
     Indication: PNEUMONIA BACTERIAL
     Dosage: 1 G, ONCE/SINGLE
     Route: 042
     Dates: start: 20150615, end: 20150615
  2. SEROPLEX [Concomitant]
     Active Substance: ESCITALOPRAM OXALATE
     Indication: DEPRESSION
     Route: 065
  3. VALIUM [Concomitant]
     Active Substance: DIAZEPAM
     Indication: PRODUCT USED FOR UNKNOWN INDICATION
     Route: 065
  4. B VITAMIN COMP                     /00003501/ [Concomitant]
     Indication: PRODUCT USED FOR UNKNOWN INDICATION
     Route: 065
  5. AMLODIPINE [Concomitant]
     Active Substance: AMLODIPINE BESYLATE
     Indication: HYPERTENSION
     Route: 065

REACTIONS (5)
  - Anaphylactic reaction [Fatal]
  - Medication error [Fatal]
  - Cardio-respiratory arrest [Fatal]
  - Tryptase increased [Fatal]
  - Histamine level increased [Fatal]

NARRATIVE: CASE EVENT DATE: 20150615
